FAERS Safety Report 13167882 (Version 1)
Quarter: 2017Q1

REPORT INFORMATION
  Report Type: Spontaneous
  Country: JP (occurrence: JP)
  Receive Date: 20170131
  Receipt Date: 20170131
  Transmission Date: 20170428
  Serious: Yes (Other)
  Sender: FDA-Public Use
  Company Number: JP-PFIZER INC-2017039409

PATIENT
  Age: 46 Year
  Sex: Male
  Weight: 71 kg

DRUGS (43)
  1. CAMPTO [Suspect]
     Active Substance: IRINOTECAN
     Dosage: 360 MG, (194.4 MG/M2), 1X/DAY
     Route: 041
     Dates: start: 20140904, end: 20140904
  2. LEVOFOLINATE YAKULT [Suspect]
     Active Substance: LEVOLEUCOVORIN CALCIUM
     Indication: PANCREATIC CARCINOMA METASTATIC
     Dosage: 360 MG, (194.4 MG/M2), 1X/DAY
     Route: 041
     Dates: start: 20140403, end: 20140403
  3. LEVOFOLINATE YAKULT [Suspect]
     Active Substance: LEVOLEUCOVORIN CALCIUM
     Dosage: 360 MG, (194.4 MG/M2), 1X/DAY
     Route: 041
     Dates: start: 20140612, end: 20140612
  4. LEVOFOLINATE YAKULT [Suspect]
     Active Substance: LEVOLEUCOVORIN CALCIUM
     Dosage: 360 MG, (194.4 MG/M2), 1X/DAY
     Route: 041
     Dates: start: 20140710, end: 20140710
  5. ELPLAT [Suspect]
     Active Substance: OXALIPLATIN
     Dosage: 150 MG, (81 MG/M2) 1X/DAY
     Route: 041
     Dates: start: 20140612, end: 20140612
  6. CAMPTO [Suspect]
     Active Substance: IRINOTECAN
     Dosage: 270 MG,  (145.8 MG/M2), 1X/DAY
     Route: 041
     Dates: start: 20140807, end: 20140807
  7. LEVOFOLINATE YAKULT [Suspect]
     Active Substance: LEVOLEUCOVORIN CALCIUM
     Dosage: 360 MG, (194.4 MG/M2), 1X/DAY
     Route: 041
     Dates: start: 20140515, end: 20140515
  8. ELPLAT [Suspect]
     Active Substance: OXALIPLATIN
     Dosage: 150 MG, (81 MG/M2) 1X/DAY
     Route: 041
     Dates: start: 20140417, end: 20140417
  9. ELPLAT [Suspect]
     Active Substance: OXALIPLATIN
     Dosage: 150 MG, (81 MG/M2) 1X/DAY
     Route: 041
     Dates: start: 20140501, end: 20140501
  10. ELPLAT [Suspect]
     Active Substance: OXALIPLATIN
     Dosage: 150 MG, (81 MG/M2) 1X/DAY
     Route: 041
     Dates: start: 20140529, end: 20140529
  11. ELPLAT [Suspect]
     Active Substance: OXALIPLATIN
     Dosage: 150 MG, (81 MG/M2) 1X/DAY
     Route: 041
     Dates: start: 20140710, end: 20140710
  12. ELPLAT [Suspect]
     Active Substance: OXALIPLATIN
     Dosage: 150 MG, (81 MG/M2) 1X/DAY
     Route: 041
     Dates: start: 20140821, end: 20140821
  13. CAMPTO [Suspect]
     Active Substance: IRINOTECAN
     Dosage: 270 MG,  (145.8 MG/M2), 1X/DAY
     Route: 041
     Dates: start: 20140724, end: 20140724
  14. CAMPTO [Suspect]
     Active Substance: IRINOTECAN
     Dosage: 360 MG,   (194.4 MG/M2), 1X/DAY
     Route: 041
     Dates: start: 20140918, end: 20140918
  15. LEVOFOLINATE YAKULT [Suspect]
     Active Substance: LEVOLEUCOVORIN CALCIUM
     Dosage: 360 MG, (194.4 MG/M2), 1X/DAY
     Route: 041
     Dates: start: 20140529, end: 20140529
  16. LEVOFOLINATE YAKULT [Suspect]
     Active Substance: LEVOLEUCOVORIN CALCIUM
     Dosage: 360 MG, (194.4 MG/M2), 1X/DAY
     Route: 041
     Dates: start: 20140724, end: 20140724
  17. CAMPTO [Suspect]
     Active Substance: IRINOTECAN
     Dosage: 270 MG,  (145.8 MG/M2), 1X/DAY
     Route: 041
     Dates: start: 20140529, end: 20140529
  18. LEVOFOLINATE YAKULT [Suspect]
     Active Substance: LEVOLEUCOVORIN CALCIUM
     Dosage: 360 MG, (194.4 MG/M2), 1X/DAY
     Route: 041
     Dates: start: 20140417, end: 20140417
  19. LEVOFOLINATE YAKULT [Suspect]
     Active Substance: LEVOLEUCOVORIN CALCIUM
     Dosage: 360 MG, (194.4 MG/M2), 1X/DAY
     Route: 041
     Dates: start: 20140626, end: 20140626
  20. LEVOFOLINATE YAKULT [Suspect]
     Active Substance: LEVOLEUCOVORIN CALCIUM
     Dosage: 360 MG, (194.4 MG/M2), 1X/DAY
     Route: 041
     Dates: start: 20140821, end: 20140821
  21. LEVOFOLINATE YAKULT [Suspect]
     Active Substance: LEVOLEUCOVORIN CALCIUM
     Dosage: 360 MG, (194.4 MG/M2), 1X/DAY
     Route: 041
     Dates: start: 20141002, end: 20141002
  22. ELPLAT [Suspect]
     Active Substance: OXALIPLATIN
     Dosage: 150 MG, (81 MG/M2) 1X/DAY
     Route: 041
     Dates: start: 20140724, end: 20140724
  23. ELPLAT [Suspect]
     Active Substance: OXALIPLATIN
     Dosage: 150 MG, (81 MG/M2) 1X/DAY
     Route: 041
     Dates: start: 20140904, end: 20140904
  24. ELPLAT [Suspect]
     Active Substance: OXALIPLATIN
     Dosage: 120 MG, (64.8 MG/M2) 1X/DAY
     Route: 041
     Dates: start: 20141002, end: 20141002
  25. CAMPTO [Suspect]
     Active Substance: IRINOTECAN
     Dosage: 270 MG,  (145.8 MG/M2), 1X/DAY
     Route: 041
     Dates: start: 20140417, end: 20140417
  26. CAMPTO [Suspect]
     Active Substance: IRINOTECAN
     Dosage: 270 MG,  (145.8 MG/M2), 1X/DAY
     Route: 041
     Dates: start: 20140821, end: 20140821
  27. ELPLAT [Suspect]
     Active Substance: OXALIPLATIN
     Dosage: 120 MG, (64.8 MG/M2) 1X/DAY
     Route: 041
     Dates: start: 20140918, end: 20140918
  28. 5-FU /00098801/ [Concomitant]
     Active Substance: FLUOROURACIL
     Indication: PANCREATIC CARCINOMA METASTATIC
     Dosage: 4430 MG, D1-2 CYCLIC (2338 MG/M2/D1-2)
     Route: 041
     Dates: start: 20140403, end: 20141002
  29. CAMPTO [Suspect]
     Active Substance: IRINOTECAN
     Indication: PANCREATIC CARCINOMA METASTATIC
     Dosage: 270 MG, (145.8 MG/M2),  1X/DAY
     Route: 041
     Dates: start: 20140403, end: 20140403
  30. CAMPTO [Suspect]
     Active Substance: IRINOTECAN
     Dosage: 270 MG,   (145.8 MG/M2), 1X/DAY
     Route: 041
     Dates: start: 20140612, end: 20140612
  31. CAMPTO [Suspect]
     Active Substance: IRINOTECAN
     Dosage: 360 MG,  (194.4 MG/M2), 1X/DAY
     Route: 041
     Dates: start: 20141002, end: 20141002
  32. LEVOFOLINATE YAKULT [Suspect]
     Active Substance: LEVOLEUCOVORIN CALCIUM
     Dosage: 360 MG, (194.4 MG/M2), 1X/DAY
     Route: 041
     Dates: start: 20140807, end: 20140807
  33. LEVOFOLINATE YAKULT [Suspect]
     Active Substance: LEVOLEUCOVORIN CALCIUM
     Dosage: 360 MG, (194.4 MG/M2), 1X/DAY
     Route: 041
     Dates: start: 20140918, end: 20140918
  34. CAMPTO [Suspect]
     Active Substance: IRINOTECAN
     Dosage: 270 MG,  (145.8 MG/M2), 1X/DAY
     Route: 041
     Dates: start: 20140501, end: 20140501
  35. ELPLAT [Suspect]
     Active Substance: OXALIPLATIN
     Dosage: 150 MG, (81 MG/M2) 1X/DAY
     Route: 041
     Dates: start: 20140515, end: 20140515
  36. ELPLAT [Suspect]
     Active Substance: OXALIPLATIN
     Dosage: 150 MG, (81 MG/M2) 1X/DAY
     Route: 041
     Dates: start: 20140626, end: 20140626
  37. ELPLAT [Suspect]
     Active Substance: OXALIPLATIN
     Dosage: 150 MG, (81 MG/M2) 1X/DAY
     Route: 041
     Dates: start: 20140807, end: 20140807
  38. CAMPTO [Suspect]
     Active Substance: IRINOTECAN
     Dosage: 270 MG,  (145.8 MG/M2), 1X/DAY
     Route: 041
     Dates: start: 20140515, end: 20140515
  39. CAMPTO [Suspect]
     Active Substance: IRINOTECAN
     Dosage: 270 MG,  (145.8 MG/M2), 1X/DAY
     Route: 041
     Dates: start: 20140626, end: 20140626
  40. CAMPTO [Suspect]
     Active Substance: IRINOTECAN
     Dosage: 270 MG,  (145.8 MG/M2), 1X/DAY
     Route: 041
     Dates: start: 20140710, end: 20140710
  41. LEVOFOLINATE YAKULT [Suspect]
     Active Substance: LEVOLEUCOVORIN CALCIUM
     Dosage: 360 MG, (194.4 MG/M2), 1X/DAY
     Route: 041
     Dates: start: 20140501, end: 20140501
  42. LEVOFOLINATE YAKULT [Suspect]
     Active Substance: LEVOLEUCOVORIN CALCIUM
     Dosage: 360 MG, (194.4 MG/M2), 1X/DAY
     Route: 041
     Dates: start: 20140904, end: 20140904
  43. ELPLAT [Suspect]
     Active Substance: OXALIPLATIN
     Indication: PANCREATIC CARCINOMA METASTATIC
     Dosage: 150 MG, (81 MG/M2) 1X/DAY
     Route: 041
     Dates: start: 20140403, end: 20140403

REACTIONS (6)
  - Hyperglycaemia [Unknown]
  - Nausea [Unknown]
  - Peripheral sensory neuropathy [Unknown]
  - Fatigue [Unknown]
  - Vomiting [Unknown]
  - Decreased appetite [Unknown]
